FAERS Safety Report 9890076 (Version 1)
Quarter: 2014Q1

REPORT INFORMATION
  Report Type: Spontaneous
  Country: US (occurrence: US)
  Receive Date: 20140212
  Receipt Date: 20140212
  Transmission Date: 20141002
  Serious: No
  Sender: FDA-Public Use
  Company Number: US-BIOGENIDEC-2014BI011091

PATIENT
  Age: 48 Year
  Sex: Female

DRUGS (7)
  1. TECFIDERA [Suspect]
     Indication: MULTIPLE SCLEROSIS
     Route: 048
     Dates: start: 201306
  2. B 12 [Concomitant]
  3. CALCIUM 500 [Concomitant]
  4. FLUOXETINE [Concomitant]
  5. TRAMADOL [Concomitant]
  6. KLONIPIN [Concomitant]
  7. VAGIFEM [Concomitant]

REACTIONS (1)
  - Multiple sclerosis [Unknown]
